FAERS Safety Report 6072313-1 (Version None)
Quarter: 2009Q1

REPORT INFORMATION
  Report Type: 
  Country: None (occurrence: None)
  Receive Date: 20090210
  Receipt Date: 20090129
  Transmission Date: 20090719
  Serious: Yes (Hospitalization)
  Sender: FDA-Public Use
  Company Number: SG-MERCK-0901SGP00004

PATIENT

DRUGS (4)
  1. JANUMET [Suspect]
     Route: 048
  2. METFORMIN HYDROCHLORIDE [Concomitant]
     Route: 048
  3. METFORMIN HYDROCHLORIDE [Concomitant]
     Route: 048
  4. JANUVIA [Concomitant]
     Route: 048

REACTIONS (4)
  - ERUCTATION [None]
  - GASTROENTERITIS [None]
  - NAUSEA [None]
  - PALPITATIONS [None]
